FAERS Safety Report 21122634 (Version 1)
Quarter: 2022Q3

REPORT INFORMATION
  Report Type: Report from Study
  Country: GB (occurrence: None)
  Receive Date: 20220723
  Receipt Date: 20220723
  Transmission Date: 20221026
  Serious: Yes (Hospitalization)
  Sender: FDA-Public Use
  Company Number: GB-ROCHE-3143060

PATIENT
  Sex: Male
  Weight: 66 kg

DRUGS (1)
  1. BEVACIZUMAB [Suspect]
     Active Substance: BEVACIZUMAB
     Indication: Pleural mesothelioma malignant
     Dosage: DATE OF LAST ADMINISTRATION BEFORE SAE 27/MAY/2022
     Route: 065

REACTIONS (1)
  - Sinus bradycardia [Unknown]
